FAERS Safety Report 13586810 (Version 1)
Quarter: 2017Q2

REPORT INFORMATION
  Report Type: Spontaneous
  Country: US (occurrence: US)
  Receive Date: 20170526
  Receipt Date: 20170526
  Transmission Date: 20170830
  Serious: No
  Sender: FDA-Public Use
  Company Number: US-ROCHE-1884308

PATIENT
  Sex: Female

DRUGS (2)
  1. CELLCEPT [Suspect]
     Active Substance: MYCOPHENOLATE MOFETIL\MYCOPHENOLATE MOFETIL HYDROCHLORIDE
     Indication: LIVER TRANSPLANT
     Route: 048
     Dates: start: 20170111
  2. VALCYTE [Suspect]
     Active Substance: VALGANCICLOVIR HYDROCHLORIDE
     Indication: LIVER TRANSPLANT
     Route: 048
     Dates: start: 20170111

REACTIONS (1)
  - Tremor [Unknown]
